FAERS Safety Report 11689076 (Version 3)
Quarter: 2015Q4

REPORT INFORMATION
  Report Type: Report from Study
  Country: JP (occurrence: JP)
  Receive Date: 20151102
  Receipt Date: 20151202
  Transmission Date: 20160304
  Serious: Yes (Other)
  Sender: FDA-Public Use
  Company Number: JP-ROCHE-1654106

PATIENT
  Age: 13 Year

DRUGS (4)
  1. FLUTIDE [Concomitant]
     Active Substance: FLUTICASONE PROPIONATE
  2. OMALIZUMAB [Suspect]
     Active Substance: OMALIZUMAB
     Indication: ASTHMA
     Route: 058
     Dates: start: 20150902
  3. ADOAIR [Concomitant]
     Active Substance: FLUTICASONE PROPIONATE\SALMETEROL XINAFOATE
  4. MEPTIN [Concomitant]
     Active Substance: PROCATEROL HYDROCHLORIDE

REACTIONS (1)
  - Pertussis [Unknown]

NARRATIVE: CASE EVENT DATE: 20151019
